FAERS Safety Report 23221489 (Version 1)
Quarter: 2023Q4

REPORT INFORMATION
  Report Type: Spontaneous
  Country: US (occurrence: US)
  Receive Date: 20231123
  Receipt Date: 20231123
  Transmission Date: 20240110
  Serious: No
  Sender: FDA-Public Use
  Company Number: US-STRIDES ARCOLAB LIMITED-2023SP003246

PATIENT
  Sex: Female

DRUGS (1)
  1. PROPAFENONE [Suspect]
     Active Substance: PROPAFENONE
     Indication: Product used for unknown indication
     Dosage: UNK; (QUALITEST PHARMACEUTICALS INC.; WHITE  ROUND TABLET; IMPRINT: 5125, A V-SHAPED SYMBOL)
     Route: 065
     Dates: start: 20230125

REACTIONS (6)
  - Constipation [Unknown]
  - Fatigue [Unknown]
  - Headache [Unknown]
  - Muscular weakness [Unknown]
  - Chills [Unknown]
  - Taste disorder [Unknown]
